FAERS Safety Report 16408604 (Version 1)
Quarter: 2019Q2

REPORT INFORMATION
  Report Type: Spontaneous
  Country: CN (occurrence: CN)
  Receive Date: 20190610
  Receipt Date: 20190610
  Transmission Date: 20190711
  Serious: Yes (Other)
  Sender: FDA-Public Use
  Company Number: CN-ROCHE-2323547

PATIENT
  Age: 55 Year
  Sex: Male

DRUGS (36)
  1. IRINOTECAN [Suspect]
     Active Substance: IRINOTECAN
     Indication: METASTASES TO LIVER
  2. GIMERACIL;OTERACIL POTASSIUM;TEGAFUR [Suspect]
     Active Substance: GIMERACIL\OTERACIL\TEGAFUR
     Indication: METASTASES TO LYMPH NODES
  3. OXALIPLATIN. [Concomitant]
     Active Substance: OXALIPLATIN
     Route: 065
     Dates: start: 20170207, end: 20170302
  4. IRINOTECAN [Suspect]
     Active Substance: IRINOTECAN
     Indication: METASTASES TO LYMPH NODES
  5. OXALIPLATIN. [Suspect]
     Active Substance: OXALIPLATIN
     Indication: METASTASES TO LYMPH NODES
  6. REGORAFENIB. [Suspect]
     Active Substance: REGORAFENIB
     Indication: ADENOCARCINOMA OF COLON
     Dosage: FROM DAY1 TO DAY21, ONCE PER 28 DAYS
     Route: 048
     Dates: start: 20170601
  7. FLUOROURACIL. [Suspect]
     Active Substance: FLUOROURACIL
     Route: 065
     Dates: start: 20160302
  8. IRINOTECAN [Suspect]
     Active Substance: IRINOTECAN
     Indication: ADENOCARCINOMA OF COLON
     Dosage: DAY1
     Route: 065
     Dates: start: 201509, end: 201602
  9. LEUCOVORIN [FOLINIC ACID] [Suspect]
     Active Substance: LEUCOVORIN
     Indication: METASTASES TO LYMPH NODES
  10. RALTITREXED [Suspect]
     Active Substance: RALTITREXED
     Indication: ADENOCARCINOMA OF COLON
     Route: 065
     Dates: start: 201610, end: 201611
  11. RALTITREXED [Suspect]
     Active Substance: RALTITREXED
     Indication: METASTASES TO LIVER
  12. LEUCOVORIN [FOLINIC ACID] [Concomitant]
     Active Substance: LEUCOVORIN
     Route: 065
     Dates: start: 20160302
  13. FLUOROURACIL. [Suspect]
     Active Substance: FLUOROURACIL
     Indication: METASTASES TO LIVER
     Dosage: DAY1
     Route: 065
     Dates: start: 201509, end: 201602
  14. OXALIPLATIN. [Suspect]
     Active Substance: OXALIPLATIN
     Indication: ADENOCARCINOMA OF COLON
     Dosage: DAY1
     Route: 065
     Dates: start: 201604, end: 201607
  15. RALTITREXED [Suspect]
     Active Substance: RALTITREXED
     Indication: METASTASES TO LYMPH NODES
  16. REGORAFENIB. [Suspect]
     Active Substance: REGORAFENIB
     Indication: METASTASES TO LYMPH NODES
  17. NIVOLUMAB [Concomitant]
     Active Substance: NIVOLUMAB
     Indication: ADENOCARCINOMA OF COLON
     Dosage: 2-3MG/KG, 200/240MG
     Route: 065
     Dates: start: 20161122
  18. GIMERACIL;OTERACIL POTASSIUM;TEGAFUR [Suspect]
     Active Substance: GIMERACIL\OTERACIL\TEGAFUR
     Indication: METASTASES TO LIVER
  19. MITOMYCIN. [Concomitant]
     Active Substance: MITOMYCIN
     Indication: METASTASES TO LIVER
     Route: 065
     Dates: start: 20160302
  20. OXALIPLATIN. [Concomitant]
     Active Substance: OXALIPLATIN
     Route: 065
     Dates: start: 20160302
  21. BEVACIZUMAB. [Suspect]
     Active Substance: BEVACIZUMAB
     Indication: METASTASES TO LYMPH NODES
     Route: 065
     Dates: start: 201509, end: 201602
  22. FLUOROURACIL. [Suspect]
     Active Substance: FLUOROURACIL
     Indication: ADENOCARCINOMA OF COLON
     Route: 065
     Dates: start: 201506, end: 201508
  23. FLUOROURACIL. [Suspect]
     Active Substance: FLUOROURACIL
     Indication: METASTASES TO LYMPH NODES
     Dosage: 46H
     Route: 065
     Dates: start: 201509, end: 201602
  24. LEUCOVORIN [FOLINIC ACID] [Suspect]
     Active Substance: LEUCOVORIN
     Indication: ADENOCARCINOMA OF COLON
     Dosage: DAY1
     Route: 065
     Dates: start: 201509, end: 201602
  25. REGORAFENIB. [Suspect]
     Active Substance: REGORAFENIB
     Indication: METASTASES TO LIVER
  26. BEVACIZUMAB. [Suspect]
     Active Substance: BEVACIZUMAB
     Indication: ADENOCARCINOMA OF COLON
     Route: 065
     Dates: start: 201411, end: 201505
  27. BEVACIZUMAB. [Suspect]
     Active Substance: BEVACIZUMAB
     Indication: METASTASES TO LIVER
     Route: 065
     Dates: start: 201506, end: 201508
  28. LEUCOVORIN [FOLINIC ACID] [Suspect]
     Active Substance: LEUCOVORIN
     Indication: METASTASES TO LIVER
  29. CALCIUM FOLINATE [Concomitant]
     Active Substance: LEUCOVORIN CALCIUM
     Indication: ADENOCARCINOMA OF COLON
     Route: 065
     Dates: start: 20170207, end: 20170302
  30. FLUOROURACIL. [Concomitant]
     Active Substance: FLUOROURACIL
     Indication: ADENOCARCINOMA OF COLON
     Route: 065
     Dates: start: 20170207, end: 20170302
  31. SUTENT [Concomitant]
     Active Substance: SUNITINIB MALATE
     Indication: ADENOCARCINOMA OF COLON
     Route: 048
  32. OXALIPLATIN. [Concomitant]
     Active Substance: OXALIPLATIN
     Dosage: 130MG/M2,200MG
     Route: 065
     Dates: start: 201411, end: 201505
  33. OXALIPLATIN. [Suspect]
     Active Substance: OXALIPLATIN
     Indication: METASTASES TO LIVER
  34. GIMERACIL;OTERACIL POTASSIUM;TEGAFUR [Suspect]
     Active Substance: GIMERACIL\OTERACIL\TEGAFUR
     Indication: ADENOCARCINOMA OF COLON
     Dosage: FROM DAY1 TO DAY14, ONCE PER 21 DAYS
     Route: 048
     Dates: start: 201604, end: 201607
  35. NIVOLUMAB [Concomitant]
     Active Substance: NIVOLUMAB
     Route: 065
     Dates: start: 20170306, end: 20170503
  36. FLUOROURACIL. [Concomitant]
     Active Substance: FLUOROURACIL
     Route: 065
     Dates: start: 201411, end: 201505

REACTIONS (3)
  - Gastrointestinal disorder [Unknown]
  - Bone marrow failure [Unknown]
  - Oedema peripheral [Unknown]
